FAERS Safety Report 9903222 (Version 1)
Quarter: 2014Q1

REPORT INFORMATION
  Report Type: Spontaneous
  Country: US (occurrence: US)
  Receive Date: 20140217
  Receipt Date: 20140217
  Transmission Date: 20141002
  Serious: No
  Sender: FDA-Public Use
  Company Number: US-ASTRAZENECA-2013SE81339

PATIENT
  Age: 54 Year
  Sex: Male

DRUGS (1)
  1. UNSPECIFIED GENERIC TENORMIN [Suspect]
     Indication: HYPERTENSION
     Dosage: GENERIC
     Route: 048

REACTIONS (6)
  - Heart rate increased [Unknown]
  - Flatulence [Unknown]
  - Micturition urgency [Unknown]
  - Oedema peripheral [Unknown]
  - Blood pressure increased [Unknown]
  - Drug ineffective [Unknown]
